FAERS Safety Report 14546121 (Version 1)
Quarter: 2018Q1

REPORT INFORMATION
  Report Type: Report from Study
  Country: FI (occurrence: FI)
  Receive Date: 20180219
  Receipt Date: 20180219
  Transmission Date: 20180509
  Serious: Yes (Other)
  Sender: FDA-Public Use
  Company Number: FI-BIOGEN-2016BI00189447

PATIENT
  Age: 59 Year
  Sex: Female

DRUGS (2)
  1. TECFIDERA [Suspect]
     Active Substance: DIMETHYL FUMARATE
     Indication: MULTIPLE SCLEROSIS
     Dosage: STARTING DOSE
     Route: 048
     Dates: start: 20160205
  2. TECFIDERA [Suspect]
     Active Substance: DIMETHYL FUMARATE
     Dosage: MAINTENANCE DOSE
     Route: 048
     Dates: end: 2017

REACTIONS (19)
  - Deafness unilateral [Not Recovered/Not Resolved]
  - Facial pain [Unknown]
  - Sinusitis [Unknown]
  - Urinary tract infection [Unknown]
  - Aphonia [Unknown]
  - Facial neuralgia [Unknown]
  - Multiple sclerosis relapse [Not Recovered/Not Resolved]
  - Nasal discomfort [Unknown]
  - Bronchitis [Unknown]
  - Gastroenteritis norovirus [Unknown]
  - Dyspepsia [Unknown]
  - Abdominal discomfort [Unknown]
  - Mood altered [Unknown]
  - Diarrhoea [Unknown]
  - Paraesthesia [Recovered/Resolved]
  - Epistaxis [Recovered/Resolved]
  - Pain in extremity [Unknown]
  - Drug dose omission [Recovered/Resolved]
  - Muscle tightness [Unknown]

NARRATIVE: CASE EVENT DATE: 20160209
